FAERS Safety Report 9995760 (Version 1)
Quarter: 2014Q1

REPORT INFORMATION
  Report Type: Spontaneous
  Country: US (occurrence: US)
  Receive Date: 20140311
  Receipt Date: 20140311
  Transmission Date: 20141002
  Serious: Yes (Other)
  Sender: FDA-Public Use
  Company Number: US-NOVOPROD-402198

PATIENT
  Sex: Female

DRUGS (3)
  1. VICTOZA [Suspect]
     Indication: PRODUCT USED FOR UNKNOWN INDICATION
     Dosage: UNK
     Route: 058
     Dates: start: 20100824, end: 20100924
  2. VICTOZA [Suspect]
     Dosage: UNK
     Route: 058
     Dates: start: 20120112, end: 20120311
  3. BYETTA [Suspect]
     Indication: PRODUCT USED FOR UNKNOWN INDICATION
     Dosage: UNK
     Route: 058
     Dates: start: 20081215, end: 20090115

REACTIONS (1)
  - Pancreatic carcinoma [Unknown]
